FAERS Safety Report 24915255 (Version 1)
Quarter: 2025Q1

REPORT INFORMATION
  Report Type: Spontaneous
  Country: ES (occurrence: ES)
  Receive Date: 20250203
  Receipt Date: 20250203
  Transmission Date: 20250408
  Serious: Yes (Other)
  Sender: RECORDATI
  Company Number: ES-ORPHANEU-2025000458

PATIENT

DRUGS (2)
  1. SIGNIFOR LAR [Suspect]
     Active Substance: PASIREOTIDE PAMOATE
     Indication: Pituitary-dependent Cushing^s syndrome
     Route: 030
  2. CABERGOLINE [Concomitant]
     Active Substance: CABERGOLINE
     Indication: Pituitary-dependent Cushing^s syndrome

REACTIONS (1)
  - Hyperglycaemia [Not Recovered/Not Resolved]
